FAERS Safety Report 7642102-2 (Version None)
Quarter: 2011Q4

REPORT INFORMATION
  Report Type: 
  Country: None (occurrence: None)
  Receive Date: 20110727
  Receipt Date: 20110727
  Transmission Date: 20120403
  Serious: Yes (Other)
  Sender: FDA-Public Use
  Company Number: None

PATIENT
  Sex: Female
  Weight: 65.7716 kg

DRUGS (1)
  1. BONIVA [Suspect]
     Indication: OSTEOPOROSIS
     Dosage: 3MG Q 3 MONTHS IVP
     Route: 042
     Dates: start: 20100101

REACTIONS (3)
  - PAIN IN EXTREMITY [None]
  - INFUSION SITE PAIN [None]
  - ERYTHEMA [None]
